FAERS Safety Report 5094007-1 (Version None)
Quarter: 2006Q3

REPORT INFORMATION
  Report Type: 
  Country: None (occurrence: None)
  Receive Date: 20060829
  Receipt Date: 20060821
  Transmission Date: 20061208
  Serious: Yes (Death)
  Sender: FDA-Public Use
  Company Number: 2006101797

PATIENT
  Age: 66 Year
  Sex: Male

DRUGS (5)
  1. PREDNISOLONE [Suspect]
     Indication: T-CELL LYMPHOMA
  2. CYCLOPHOSPHAMIDE [Suspect]
     Indication: T-CELL LYMPHOMA
  3. RITUXIMAB (RITUXIMAB) [Suspect]
     Indication: T-CELL LYMPHOMA
  4. VINCRISTINE [Suspect]
     Indication: T-CELL LYMPHOMA
  5. CHLORAMBUCIL (CHLORAMBUCIL) [Concomitant]

REACTIONS (3)
  - LIVER DISORDER [None]
  - T-CELL LYMPHOMA RECURRENT [None]
  - THERAPY NON-RESPONDER [None]
